FAERS Safety Report 15155419 (Version 2)
Quarter: 2018Q3

REPORT INFORMATION
  Report Type: Spontaneous
  Country: DE (occurrence: DE)
  Receive Date: 20180717
  Receipt Date: 20180831
  Transmission Date: 20181010
  Serious: Yes (Hospitalization, Other)
  Sender: FDA-Public Use
  Company Number: DE-OTSUKA-2018_020495

PATIENT
  Sex: Male
  Weight: 102 kg

DRUGS (9)
  1. ABILIFY MAINTENA [Suspect]
     Active Substance: ARIPIPRAZOLE
     Indication: SCHIZOPHRENIA
     Dosage: 400 MG, QM
     Route: 030
     Dates: end: 20180528
  2. ABILIFY [Suspect]
     Active Substance: ARIPIPRAZOLE
     Dosage: 30 MG, QD
     Route: 065
  3. ZYPREXA [Concomitant]
     Active Substance: OLANZAPINE
     Indication: SCHIZOPHRENIA
     Dosage: 20 MG, QD
     Route: 065
  4. TAVOR [Concomitant]
     Indication: PRODUCT USED FOR UNKNOWN INDICATION
     Dosage: 4 MG, QD
     Route: 065
  5. TAVOR [Concomitant]
     Dosage: 1?0.5?0.5MG
     Route: 065
  6. ABILIFY [Suspect]
     Active Substance: ARIPIPRAZOLE
     Indication: SCHIZOPHRENIA
     Dosage: UNK
     Route: 065
  7. ABILIFY [Suspect]
     Active Substance: ARIPIPRAZOLE
     Dosage: 20 MG, QD
     Route: 065
  8. QUETIAPINE. [Concomitant]
     Active Substance: QUETIAPINE
     Indication: SCHIZOPHRENIA
     Dosage: 100 MG, QD
     Route: 065
  9. TAVOR [Concomitant]
     Dosage: DECREASING
     Route: 065

REACTIONS (16)
  - Dysphagia [Recovered/Resolved]
  - Extrapyramidal disorder [Recovered/Resolved]
  - Agitation [Unknown]
  - Psychotic symptom [Unknown]
  - Mania [Unknown]
  - Schizophrenia [Unknown]
  - Hallucination, auditory [Unknown]
  - Drug dependence [Unknown]
  - Hospitalisation [Unknown]
  - Seizure [Unknown]
  - Drug abuse [Unknown]
  - Movement disorder [Unknown]
  - Frustration tolerance decreased [Unknown]
  - Tension [Unknown]
  - Restless legs syndrome [Unknown]
  - Irritability [Unknown]

NARRATIVE: CASE EVENT DATE: 20180413
